FAERS Safety Report 7090087-2 (Version None)
Quarter: 2010Q4

REPORT INFORMATION
  Report Type: 
  Country: None (occurrence: None)
  Receive Date: 20101109
  Receipt Date: 20101026
  Transmission Date: 20110411
  Serious: Yes (Other)
  Sender: FDA-Public Use
  Company Number: IT-RANBAXY-2010RR-39200

PATIENT
  Age: 74 Year
  Sex: Female

DRUGS (2)
  1. SIMVASTATIN [Suspect]
     Dosage: UNK
  2. ASPIRIN [Concomitant]
     Indication: PROPHYLAXIS

REACTIONS (2)
  - ARTHRALGIA [None]
  - MUSCULOSKELETAL PAIN [None]
